FAERS Safety Report 6044957-4 (Version None)
Quarter: 2009Q1

REPORT INFORMATION
  Report Type: 
  Country: None (occurrence: None)
  Receive Date: 20090116
  Receipt Date: 20090116
  Transmission Date: 20090719
  Serious: Yes (Life-Threatening, Other)
  Sender: FDA-Public Use
  Company Number: None

PATIENT

DRUGS (1)
  1. ARAVA [Suspect]

REACTIONS (4)
  - ARTHRALGIA [None]
  - NO THERAPEUTIC RESPONSE [None]
  - STEVENS-JOHNSON SYNDROME [None]
  - THERAPEUTIC RESPONSE UNEXPECTED WITH DRUG SUBSTITUTION [None]
